FAERS Safety Report 25952188 (Version 1)
Quarter: 2025Q4

REPORT INFORMATION
  Report Type: Spontaneous
  Country: JP (occurrence: JP)
  Receive Date: 20251023
  Receipt Date: 20251023
  Transmission Date: 20260118
  Serious: Yes (Hospitalization)
  Sender: ADVANZ PHARMA
  Company Number: JP-ADVANZ PHARMA-202510009274

PATIENT

DRUGS (1)
  1. ZONISAMIDE [Suspect]
     Active Substance: ZONISAMIDE
     Indication: Parkinson^s disease
     Dosage: UNK (TRERIEF)
     Route: 048

REACTIONS (1)
  - Fracture [Unknown]
